FAERS Safety Report 4446512-6 (Version None)
Quarter: 2004Q3

REPORT INFORMATION
  Report Type: 
  Country: None (occurrence: None)
  Receive Date: 20040908
  Receipt Date: 20040827
  Transmission Date: 20050211
  Serious: Yes (Hospitalization)
  Sender: FDA-Public Use
  Company Number: PANC00304002936

PATIENT
  Age: 47 Year
  Sex: Female

DRUGS (1)
  1. CREON [Suspect]
     Indication: ILL-DEFINED DISORDER
     Dosage: PO
     Route: 048
     Dates: start: 20000101

REACTIONS (4)
  - CROHN'S DISEASE [None]
  - INTESTINAL MASS [None]
  - LARGE INTESTINE PERFORATION [None]
  - PERITONITIS [None]
